FAERS Safety Report 19813136 (Version 1)
Quarter: 2021Q3

REPORT INFORMATION
  Report Type: Spontaneous
  Country: US (occurrence: US)
  Receive Date: 20210909
  Receipt Date: 20210909
  Transmission Date: 20211014
  Serious: Yes (Hospitalization)
  Sender: FDA-Public Use
  Company Number: None

PATIENT
  Age: 71 Year
  Sex: Male

DRUGS (12)
  1. FLUTICASONE. [Concomitant]
     Active Substance: FLUTICASONE
  2. SUTENT [Suspect]
     Active Substance: SUNITINIB MALATE
     Indication: RENAL CANCER
     Route: 048
     Dates: start: 20161207
  3. VALACYCLIR [Concomitant]
  4. ASMANEX [Concomitant]
     Active Substance: MOMETASONE FUROATE
  5. LORAZEPAM. [Concomitant]
     Active Substance: LORAZEPAM
  6. LOSARTAN/HCT [Concomitant]
     Active Substance: HYDROCHLOROTHIAZIDE\LOSARTAN POTASSIUM
  7. PROCHLORPER [Concomitant]
  8. ZYRTEC ALLGY [Concomitant]
  9. MELATONIN [Concomitant]
     Active Substance: MELATONIN
  10. PROAIR HFA AER [Concomitant]
  11. POTASSIUM [Concomitant]
     Active Substance: POTASSIUM
  12. TRAMADOL HCL [Concomitant]
     Active Substance: TRAMADOL HYDROCHLORIDE

REACTIONS (2)
  - Therapy interrupted [None]
  - Hospitalisation [None]

NARRATIVE: CASE EVENT DATE: 20210823
